FAERS Safety Report 8851806 (Version 2)
Quarter: 2012Q4

REPORT INFORMATION
  Report Type: 
  Country: US (occurrence: US)
  Receive Date: 20121022
  Receipt Date: 20121127
  Transmission Date: 20130627
  Serious: Yes (Death, Other)
  Sender: FDA-Public Use
  Company Number: US-PFIZER INC-2012262457

PATIENT
  Age: 38 Year
  Sex: Female
  Weight: 98 kg

DRUGS (3)
  1. LYRICA [Suspect]
     Indication: BLADDER DISORDER
     Dosage: 250 mg, daily
  2. LYRICA [Suspect]
     Indication: CYSTITIS INTERSTITIAL
  3. SEROQUEL [Concomitant]
     Dosage: UNK

REACTIONS (2)
  - Completed suicide [Fatal]
  - Overdose [Fatal]
